FAERS Safety Report 6883121-3 (Version None)
Quarter: 2010Q3

REPORT INFORMATION
  Report Type: 
  Country: None (occurrence: None)
  Receive Date: 20100729
  Receipt Date: 20100727
  Transmission Date: 20110219
  Serious: Yes (Death)
  Sender: FDA-Public Use
  Company Number: US-BRISTOL-MYERS SQUIBB COMPANY-15211824

PATIENT
  Age: 57 Year
  Sex: Male

DRUGS (1)
  1. ETOPOPHOS PRESERVATIVE FREE [Suspect]

REACTIONS (1)
  - DEATH [None]
